FAERS Safety Report 9199468 (Version 2)
Quarter: 2013Q2

REPORT INFORMATION
  Report Type: Spontaneous
  Country: US (occurrence: None)
  Receive Date: 20130326
  Receipt Date: 20130426
  Transmission Date: 20140414
  Serious: Yes (Other)
  Sender: FDA-Public Use
  Company Number: ACO_34850_2013

PATIENT
  Age: 35 Year
  Sex: Female
  Weight: 118.4 kg

DRUGS (4)
  1. AMPYRA [Suspect]
     Indication: GAIT DISTURBANCE
     Dates: start: 201202, end: 201301
  2. AMPYRA [Suspect]
     Indication: BALANCE DISORDER
     Dates: start: 201202, end: 201301
  3. AMITRIPTYLINE (AMITRIPTYLINE) [Concomitant]
  4. AVONEX (INTERFERON BETA-1A) [Concomitant]

REACTIONS (7)
  - Loss of consciousness [None]
  - Hypertension [None]
  - Oedema peripheral [None]
  - Pain in extremity [None]
  - Multiple sclerosis [None]
  - Headache [None]
  - Syncope [None]
